FAERS Safety Report 5885617-X (Version None)
Quarter: 2008Q3

REPORT INFORMATION
  Report Type: 
  Country: None (occurrence: None)
  Receive Date: 20080912
  Receipt Date: 20080827
  Transmission Date: 20090109
  Serious: Yes (Hospitalization)
  Sender: FDA-Public Use
  Company Number: 1000000843

PATIENT
  Age: 78 Year
  Sex: Female

DRUGS (10)
  1. CITALOPRAM [Suspect]
     Dosage: 20 MG, (20 MG, 1 N 1 D),ORAL
     Route: 048
  2. FOSAVANCE (TABLETS) [Suspect]
     Dosage: 0.1429 DOSAGE FORMS (1 DOSAGE FORMS, 1 IN 1 2K), ORAL
     Route: 048
  3. TRANXENE [Suspect]
     Dosage: 2 DOSAGE FORMS (2 DOSAGE FORMS 1 IN 1 D), ORAL
     Route: 048
     Dates: end: 20080619
  4. DAFLON (500 MILLIGRAM, TABLETS) [Suspect]
     Dosage: 2 DOSAGE FORMS (2 DOSAGE FORMS 1 IN 1 D), ORAL
     Route: 048
     Dates: end: 20080619
  5. LODOZ [Suspect]
     Dosage: 1 DOSAGE FORMS (1 DOSAGE FORMS 1 IN 1 D),ORAL
     Route: 048
  6. CATAPRESSAN (0.15 MILLIGRAM, TABLETS) [Suspect]
     Dosage: 0.15 MG (0.15 MG, 1 IN 1 D),ORAL
     Route: 048
  7. TRIVASTAL (50 MILLIGRAM, SUSTAINED-RELEASE TABLET) [Suspect]
     Dosage: 1 DOSAGE FORMS (1 DOSAGE FORMS, 1 IN 1 D), ORAL
     Route: 048
  8. ZOLPIDEM MERCK (10 MILLIGRAM, TABLETS) [Suspect]
     Dosage: 10 MG (10 MG, 1 IN 1 D), ORAL
     Route: 048
     Dates: start: 20080601, end: 20080601
  9. STILNOX [Suspect]
     Dates: start: 20080101
  10. DAFLON [Suspect]
     Dates: start: 20080101

REACTIONS (1)
  - PEMPHIGOID [None]
